FAERS Safety Report 9314052 (Version 1)
Quarter: 2013Q2

REPORT INFORMATION
  Report Type: Spontaneous
  Country: US (occurrence: None)
  Receive Date: 20130524
  Receipt Date: 20130524
  Transmission Date: 20140414
  Serious: No
  Sender: FDA-Public Use
  Company Number: None

PATIENT
  Age: 55 Year
  Sex: Male
  Weight: 70.7 kg

DRUGS (2)
  1. ISONIAZID [Suspect]
     Indication: LATENT TUBERCULOSIS
     Route: 048
     Dates: start: 20130221, end: 20130410
  2. RIFAPENTINE [Suspect]
     Indication: LATENT TUBERCULOSIS
     Route: 048
     Dates: start: 20130221, end: 20130410

REACTIONS (5)
  - Hepatic enzyme increased [None]
  - Chills [None]
  - Decreased appetite [None]
  - Fatigue [None]
  - Nausea [None]
